FAERS Safety Report 12341346 (Version 1)
Quarter: 2016Q2

REPORT INFORMATION
  Report Type: Spontaneous
  Country: US (occurrence: None)
  Receive Date: 20160505
  Receipt Date: 20160505
  Transmission Date: 20160815
  Serious: No
  Sender: FDA-Public Use
  Company Number: None

PATIENT
  Age: 58 Year
  Sex: Male

DRUGS (4)
  1. ADVAIR HFA [Concomitant]
     Active Substance: FLUTICASONE PROPIONATE\SALMETEROL XINAFOATE
  2. SPRYCEL [Suspect]
     Active Substance: DASATINIB
  3. FLONASE [Concomitant]
     Active Substance: FLUTICASONE PROPIONATE
  4. FLOMAX [Concomitant]
     Active Substance: TAMSULOSIN HYDROCHLORIDE

REACTIONS (2)
  - Right ventricular dysfunction [None]
  - Peripheral swelling [None]

NARRATIVE: CASE EVENT DATE: 20160415
